FAERS Safety Report 17873703 (Version 2)
Quarter: 2021Q2

REPORT INFORMATION
  Report Type: Other
  Country: US (occurrence: US)
  Receive Date: 20200609
  Receipt Date: 20210517
  Transmission Date: 20210717
  Serious: Yes (Hospitalization, Other)
  Sender: FDA-Public Use
  Company Number: US-ROCHE-2576617

PATIENT
  Age: 53 Year
  Sex: Female
  Weight: 86.26 kg

DRUGS (13)
  1. OCREVUS [Suspect]
     Active Substance: OCRELIZUMAB
     Route: 042
     Dates: start: 202010
  2. BUPROPION. [Concomitant]
     Active Substance: BUPROPION
     Indication: DEPRESSION
     Route: 048
  3. BACLOFEN. [Concomitant]
     Active Substance: BACLOFEN
     Indication: MUSCLE SPASTICITY
     Dosage: 2 OR 3 A DAY AS NEEDED
     Route: 048
     Dates: start: 2008
  4. OCREVUS [Suspect]
     Active Substance: OCRELIZUMAB
     Indication: PRIMARY PROGRESSIVE MULTIPLE SCLEROSIS
     Route: 042
  5. BENEFIBER [Concomitant]
     Active Substance: STARCH, WHEAT
  6. DULOXETINE. [Concomitant]
     Active Substance: DULOXETINE
     Indication: DEPRESSION
     Route: 048
  7. ALIGN [Concomitant]
     Active Substance: BIFIDOBACTERIUM LONGUM SUBSP. INFANTIS
     Dosage: STOMACH ISSUES
     Route: 048
     Dates: start: 202003
  8. TOPIRAMATE. [Concomitant]
     Active Substance: TOPIRAMATE
     Indication: HEADACHE
     Route: 048
  9. DIAZEPAM. [Suspect]
     Active Substance: DIAZEPAM
     Indication: MUSCLE SPASMS
     Dosage: 1 IN AM; 2 IN PM
     Route: 048
     Dates: start: 2018
  10. ROSUVASTATIN. [Concomitant]
     Active Substance: ROSUVASTATIN
     Indication: BLOOD CHOLESTEROL INCREASED
     Route: 048
  11. OCREVUS [Suspect]
     Active Substance: OCRELIZUMAB
     Indication: RELAPSING MULTIPLE SCLEROSIS
     Dosage: 300 MG IV FOLLOWED BY 300 MG IV 2 WEEKS LATER;
     Route: 042
     Dates: start: 20200309
  12. DIAZEPAM. [Suspect]
     Active Substance: DIAZEPAM
     Dosage: 1 IN THE MORNING AND 2 IN THE EVENING
     Route: 048
  13. MIRALAX [Concomitant]
     Active Substance: POLYETHYLENE GLYCOL 3350
     Indication: CONSTIPATION
     Dosage: EVERY OTHER DAY
     Route: 048
     Dates: start: 202004

REACTIONS (9)
  - Pruritus [Recovered/Resolved]
  - Pain [Not Recovered/Not Resolved]
  - Fall [Unknown]
  - Rib fracture [Not Recovered/Not Resolved]
  - Blood cholesterol increased [Not Recovered/Not Resolved]
  - Urinary tract infection [Recovering/Resolving]
  - Constipation [Not Recovered/Not Resolved]
  - Nephrolithiasis [Recovered/Resolved]
  - Uhthoff^s phenomenon [Not Recovered/Not Resolved]

NARRATIVE: CASE EVENT DATE: 2018
